FAERS Safety Report 20088843 (Version 1)
Quarter: 2021Q4

REPORT INFORMATION
  Report Type: Spontaneous
  Country: US (occurrence: US)
  Receive Date: 20211119
  Receipt Date: 20211119
  Transmission Date: 20220303
  Serious: No
  Sender: FDA-Public Use
  Company Number: US-CARLSBAD-2021USCTISPO00004

PATIENT
  Age: 69 Year
  Sex: Male
  Weight: 200 kg

DRUGS (2)
  1. DICLOFENAC SODIUM [Suspect]
     Active Substance: DICLOFENAC SODIUM
     Indication: Arthralgia
     Dosage: DELAYED-RELEASE TABLETS
     Route: 048
     Dates: start: 202108
  2. ALISKIREN [Concomitant]
     Active Substance: ALISKIREN
     Indication: Blood pressure measurement
     Route: 048

REACTIONS (1)
  - Fatigue [Not Recovered/Not Resolved]
